FAERS Safety Report 4269884-4 (Version None)
Quarter: 2004Q1

REPORT INFORMATION
  Report Type: 
  Country: None (occurrence: None)
  Receive Date: 20040112
  Receipt Date: 20040112
  Transmission Date: 20041129
  Serious: Yes (Hospitalization)
  Sender: FDA-Public Use
  Company Number: None

PATIENT
  Age: 47 Year
  Sex: Male

DRUGS (6)
  1. CLONAZEPAM [Suspect]
     Indication: CONVULSION
     Dosage: 0.5ML QD PRN
     Dates: start: 20020801
  2. CODEINE [Suspect]
     Indication: PAIN
     Dosage: 30 MG Q 6 H PRN
     Dates: start: 20030301
  3. ATENOLOL [Concomitant]
  4. EFFEXOR [Concomitant]
  5. HYDROCHLOROTHIAZIDE [Concomitant]
  6. REMERON [Concomitant]

REACTIONS (1)
  - DIZZINESS [None]
